FAERS Safety Report 16283569 (Version 2)
Quarter: 2019Q4

REPORT INFORMATION
  Report Type: Report from Study
  Country: US (occurrence: US)
  Receive Date: 20190507
  Receipt Date: 20191126
  Transmission Date: 20200122
  Serious: No
  Sender: FDA-Public Use
  Company Number: US-SA-2019SA121026

PATIENT
  Age: 68 Year
  Sex: Female

DRUGS (2)
  1. ELIGLUSTAT. [Suspect]
     Active Substance: ELIGLUSTAT
     Indication: GAUCHER^S DISEASE
     Dosage: 84 IU, QD (2 PILLS/ DAY)
     Route: 048
     Dates: start: 20150324
  2. ELIGLUSTAT. [Suspect]
     Active Substance: ELIGLUSTAT
     Dosage: 84 MG, BID
     Route: 048
     Dates: start: 20100413

REACTIONS (1)
  - Product dose omission [Unknown]
